FAERS Safety Report 7806613-9 (Version None)
Quarter: 2011Q4

REPORT INFORMATION
  Report Type: 
  Country: None (occurrence: None)
  Receive Date: 20111011
  Receipt Date: 20111007
  Transmission Date: 20120403
  Serious: Yes (Death)
  Sender: FDA-Public Use
  Company Number: GB-ABBOTT-11P-167-0862019-00

PATIENT
  Sex: Male

DRUGS (1)
  1. HUMIRA [Suspect]
     Indication: RHEUMATOID ARTHRITIS
     Route: 058
     Dates: start: 20060804, end: 20100530

REACTIONS (3)
  - MESOTHELIOMA MALIGNANT [None]
  - LOWER RESPIRATORY TRACT INFECTION [None]
  - MESOTHELIOMA [None]
